FAERS Safety Report 4341509-9 (Version None)
Quarter: 2004Q2

REPORT INFORMATION
  Report Type: 
  Country: None (occurrence: None)
  Receive Date: 20040419
  Receipt Date: 20040419
  Transmission Date: 20050107
  Serious: Yes (Other)
  Sender: FDA-Public Use
  Company Number: None

PATIENT
  Sex: Female

DRUGS (1)
  1. GAMMAGARD [Suspect]
     Indication: FATIGUE
     Dosage: 30 G IV QD X 4 DAYS
     Route: 042
     Dates: start: 20040412, end: 20040415

REACTIONS (3)
  - CHEST PAIN [None]
  - HEADACHE [None]
  - NAUSEA [None]
